FAERS Safety Report 19948753 (Version 1)
Quarter: 2021Q4

REPORT INFORMATION
  Report Type: Spontaneous
  Country: CN (occurrence: CN)
  Receive Date: 20211012
  Receipt Date: 20211012
  Transmission Date: 20220303
  Serious: Yes (Hospitalization, Other)
  Sender: FDA-Public Use
  Company Number: CN-BAXTER-2021BAX026410

PATIENT
  Age: 57 Year
  Sex: Female
  Weight: 50 kg

DRUGS (14)
  1. CYCLOPHOSPHAMIDE [Suspect]
     Active Substance: CYCLOPHOSPHAMIDE
     Indication: Diffuse large B-cell lymphoma
     Dosage: 1ST TO 4TH REGIMEN (PRIOR);
     Route: 041
  2. CYCLOPHOSPHAMIDE [Suspect]
     Active Substance: CYCLOPHOSPHAMIDE
     Dosage: FIFTH REGIMEN; CYCLOPHOSPHAMIDE 1.1G + 0.9% NS 100ML;
     Route: 041
     Dates: start: 20190827, end: 20190827
  3. SODIUM CHLORIDE [Suspect]
     Active Substance: SODIUM CHLORIDE
     Indication: Medication dilution
     Dosage: DILUENT FOR RITUXIMAB; FIFTH REGIMEN
     Route: 041
     Dates: start: 20190823, end: 20190823
  4. SODIUM CHLORIDE [Suspect]
     Active Substance: SODIUM CHLORIDE
     Dosage: DILUENT FOR VINDESINE, FIFTH REGIMEN;
     Route: 041
     Dates: start: 20190824, end: 20190824
  5. SODIUM CHLORIDE [Suspect]
     Active Substance: SODIUM CHLORIDE
     Dosage: DILUENT FOR CYCLOPHOSPHAMIDE; FIFTH REGIMEN
     Route: 041
     Dates: start: 20190824, end: 20190824
  6. DEXTROSE [Suspect]
     Active Substance: DEXTROSE
     Indication: Medication dilution
     Dosage: DILUENT FOR DOXORUBICIN LIPOSOME; FIFTH REGIMEN
     Route: 041
     Dates: start: 20190824, end: 20190824
  7. DOXORUBICIN HYDROCHLORIDE [Suspect]
     Active Substance: DOXORUBICIN HYDROCHLORIDE
     Indication: Diffuse large B-cell lymphoma
     Dosage: 1ST TO 4TH REGIMEN;
     Route: 041
  8. DOXORUBICIN HYDROCHLORIDE [Suspect]
     Active Substance: DOXORUBICIN HYDROCHLORIDE
     Dosage: DOXORUBICIN LIPOSOME 40MG + 5% GS 250ML, FIFTH REGIMEN
     Route: 041
     Dates: start: 20190824, end: 20190824
  9. VINDESINE SULFATE [Suspect]
     Active Substance: VINDESINE SULFATE
     Indication: Diffuse large B-cell lymphoma
     Dosage: 1ST TO 4TH REGIMEN;
     Route: 041
  10. VINDESINE SULFATE [Suspect]
     Active Substance: VINDESINE SULFATE
     Dosage: VINDESINE 4.6MG + 0.9% NS 100ML, FIFTH REGIMEN
     Route: 041
     Dates: start: 20190824, end: 20190824
  11. PREDNISONE ACETATE [Suspect]
     Active Substance: PREDNISONE ACETATE
     Indication: Diffuse large B-cell lymphoma
     Dosage: TABLETS; 1ST TO 4TH REGIMEN;
     Route: 048
  12. PREDNISONE ACETATE [Suspect]
     Active Substance: PREDNISONE ACETATE
     Dosage: TABLETS; FIFTH REGIMEN
     Route: 048
     Dates: start: 20190824, end: 20190829
  13. RITUXIMAB [Suspect]
     Active Substance: RITUXIMAB
     Indication: Diffuse large B-cell lymphoma
     Dosage: 1ST TO 4TH REGIMEN;
     Route: 041
  14. RITUXIMAB [Suspect]
     Active Substance: RITUXIMAB
     Dosage: RITUXIMAB 600MG + 0.9% NS 200ML, FIFTH REGIMEN
     Route: 041
     Dates: start: 20190823, end: 20190823

REACTIONS (3)
  - Myelosuppression [Recovering/Resolving]
  - Pneumonia [Unknown]
  - Myelosuppression [Recovered/Resolved]

NARRATIVE: CASE EVENT DATE: 20190830
